FAERS Safety Report 5062681-1 (Version None)
Quarter: 2006Q3

REPORT INFORMATION
  Report Type: 
  Country: None (occurrence: None)
  Receive Date: 20060725
  Receipt Date: 20060725
  Transmission Date: 20061208
  Serious: No
  Sender: FDA-Public Use
  Company Number: None

PATIENT

DRUGS (2)
  1. XYLOCAINE [Suspect]
     Indication: CATARACT OPERATION
     Dosage: ONCE   RETROBULBAR
     Route: 056
     Dates: start: 20060720, end: 20060720
  2. MARCAINE [Suspect]
     Dosage: ONCE   RETROBULBAR
     Route: 056
     Dates: start: 20060720, end: 20060720

REACTIONS (1)
  - DRUG INEFFECTIVE [None]
